FAERS Safety Report 16151996 (Version 1)
Quarter: 2019Q2

REPORT INFORMATION
  Report Type: Spontaneous
  Country: IT (occurrence: IT)
  Receive Date: 20190403
  Receipt Date: 20190403
  Transmission Date: 20190711
  Serious: Yes (Hospitalization, Other)
  Sender: FDA-Public Use
  Company Number: IT-PIRAMAL ENTERPRISES LIMITED-2019-PEL-000087

PATIENT
  Age: 45 Year
  Sex: Female

DRUGS (2)
  1. SEVOFLURANE PIRAMAL [Suspect]
     Active Substance: SEVOFLURANE
     Indication: ANAESTHESIA
     Dosage: 2.5 PERCENT
  2. REMIFENTANIL [Suspect]
     Active Substance: REMIFENTANIL
     Indication: MAINTENANCE OF ANAESTHESIA
     Dosage: 0.15?0.20 ?G/KG/MIN
     Route: 065

REACTIONS (4)
  - Respiratory distress [Unknown]
  - Chest pain [Unknown]
  - Oxygen saturation decreased [Unknown]
  - Pneumothorax [Unknown]
